FAERS Safety Report 12474391 (Version 1)
Quarter: 2016Q2

REPORT INFORMATION
  Report Type: Spontaneous
  Country: US (occurrence: None)
  Receive Date: 20160616
  Receipt Date: 20160616
  Transmission Date: 20160815
  Serious: Yes (Disabling)
  Sender: FDA-Public Use
  Company Number: None

PATIENT
  Age: 72 Year
  Sex: Female
  Weight: 52.16 kg

DRUGS (11)
  1. BIOTIN [Concomitant]
     Active Substance: BIOTIN
  2. LEVOXYL [Concomitant]
     Active Substance: LEVOTHYROXINE SODIUM
  3. ASCORBIC ACID. [Concomitant]
     Active Substance: ASCORBIC ACID
  4. GLUCOSAMINE/CHONDROITIN [Concomitant]
  5. XANAX [Concomitant]
     Active Substance: ALPRAZOLAM
  6. FLAGYL [Suspect]
     Active Substance: METRONIDAZOLE\METRONIDAZOLE HYDROCHLORIDE
     Indication: DIARRHOEA
     Route: 048
     Dates: start: 20160518, end: 20160523
  7. CHOLECALCIFEROL, VITAMIN D3 [Concomitant]
  8. METOPROLOL XL (TOPROL XL) [Concomitant]
  9. CALCIUM CARBONATE (OSCAL) [Concomitant]
  10. DIPHENHYDRAMINE (BENADRYL) [Concomitant]
  11. MAGNESIUM [Concomitant]
     Active Substance: MAGNESIUM

REACTIONS (7)
  - Headache [None]
  - Nausea [None]
  - Breast pain [None]
  - Dizziness [None]
  - Stomatitis [None]
  - Abdominal distension [None]
  - Breast swelling [None]

NARRATIVE: CASE EVENT DATE: 20160518
